FAERS Safety Report 8350792-4 (Version None)
Quarter: 2012Q2

REPORT INFORMATION
  Report Type: 
  Country: None (occurrence: None)
  Receive Date: 20120510
  Receipt Date: 20120508
  Transmission Date: 20120825
  Serious: Yes (Other)
  Sender: FDA-Public Use
  Company Number: IE-GLAXOSMITHKLINE-B0800555A

PATIENT
  Age: 34 Year
  Sex: Female

DRUGS (2)
  1. LAMICTAL [Suspect]
     Indication: PRODUCT USED FOR UNKNOWN INDICATION
     Dates: start: 20120208, end: 20120306
  2. VALPROATE SODIUM [Concomitant]

REACTIONS (26)
  - NECK PAIN [None]
  - PYREXIA [None]
  - TONGUE DISCOLOURATION [None]
  - PAIN IN EXTREMITY [None]
  - LYMPH NODE PAIN [None]
  - MUSCULOSKELETAL PAIN [None]
  - FATIGUE [None]
  - BEDRIDDEN [None]
  - OEDEMA PERIPHERAL [None]
  - STEVENS-JOHNSON SYNDROME [None]
  - EYE DISCHARGE [None]
  - GAIT DISTURBANCE [None]
  - SKIN EXFOLIATION [None]
  - EAR PAIN [None]
  - LIP SWELLING [None]
  - HEADACHE [None]
  - INFLUENZA LIKE ILLNESS [None]
  - URTICARIA [None]
  - AURICULAR SWELLING [None]
  - WHITE BLOOD CELL COUNT DECREASED [None]
  - LYMPHADENOPATHY [None]
  - ASTHENIA [None]
  - RASH GENERALISED [None]
  - PARAESTHESIA [None]
  - SWOLLEN TONGUE [None]
  - EAR PRURITUS [None]
